FAERS Safety Report 14111638 (Version 3)
Quarter: 2018Q1

REPORT INFORMATION
  Report Type: Report from Study
  Country: None (occurrence: ZA)
  Receive Date: 20171020
  Receipt Date: 20180323
  Transmission Date: 20180508
  Serious: Yes (Hospitalization)
  Sender: FDA-Public Use
  Company Number: ZA-ABBVIE-17K-143-2132364-00

PATIENT
  Age: 64 Year
  Sex: Female
  Weight: 93 kg

DRUGS (1)
  1. HUMIRA [Suspect]
     Active Substance: ADALIMUMAB
     Indication: RHEUMATOID ARTHRITIS
     Route: 058
     Dates: end: 201710

REACTIONS (6)
  - Swelling face [Unknown]
  - Swollen tongue [Unknown]
  - Gastrointestinal viral infection [Not Recovered/Not Resolved]
  - Nausea [Unknown]
  - Hypotension [Unknown]
  - Hypersensitivity [Unknown]

NARRATIVE: CASE EVENT DATE: 201710
